FAERS Safety Report 4833763-1 (Version None)
Quarter: 2005Q4

REPORT INFORMATION
  Report Type: 
  Country: None (occurrence: None)
  Receive Date: 20051118
  Receipt Date: 20051107
  Transmission Date: 20060501
  Serious: Yes (Death)
  Sender: FDA-Public Use
  Company Number: 2005-BP-19435RO

PATIENT
  Age: 45 Year
  Sex: 0

DRUGS (3)
  1. METHADONE HCL [Suspect]
  2. ALPRAZOLAM [Suspect]
  3. ACETAMINOPHEN W/HYDROCODONE (PROCET/01554201/) [Suspect]

REACTIONS (2)
  - CARDIAC ARREST [None]
  - RESPIRATORY ARREST [None]
